FAERS Safety Report 14873740 (Version 1)
Quarter: 2018Q2

REPORT INFORMATION
  Report Type: Report from Study
  Country: None (occurrence: CL)
  Receive Date: 20180510
  Receipt Date: 20180510
  Transmission Date: 20180711
  Serious: Yes (Disabling, Other)
  Sender: FDA-Public Use
  Company Number: CL-ABBVIE-18K-034-2350905-00

PATIENT
  Age: 42 Year
  Sex: Male

DRUGS (2)
  1. FOLIC ACID. [Concomitant]
     Active Substance: FOLIC ACID
     Indication: PRODUCT USED FOR UNKNOWN INDICATION
  2. HUMIRA [Suspect]
     Active Substance: ADALIMUMAB
     Indication: RHEUMATOID ARTHRITIS
     Route: 058
     Dates: start: 20170512, end: 20180301

REACTIONS (2)
  - Paraplegia [Recovered/Resolved with Sequelae]
  - Post procedural infection [Recovering/Resolving]

NARRATIVE: CASE EVENT DATE: 201803
